FAERS Safety Report 6874485-5 (Version None)
Quarter: 2010Q3

REPORT INFORMATION
  Report Type: 
  Country: None (occurrence: None)
  Receive Date: 20100723
  Receipt Date: 20100723
  Transmission Date: 20110219
  Serious: Yes (Hospitalization)
  Sender: FDA-Public Use
  Company Number: None

PATIENT
  Age: 80 Year
  Sex: Male

DRUGS (2)
  1. HEPARIN [Suspect]
     Dosage: 25000 UNITS IV DRIP
     Route: 041
     Dates: start: 20100117, end: 20100117
  2. WARFARIN SODIUM [Suspect]
     Dosage: WARFARIN 5 MG DAILY PO
     Route: 048
     Dates: start: 20100117, end: 20100118

REACTIONS (3)
  - MEDIASTINAL HAEMATOMA [None]
  - MEDIASTINAL HAEMORRHAGE [None]
  - RESPIRATORY DISTRESS [None]
